FAERS Safety Report 18891774 (Version 2)
Quarter: 2021Q2

REPORT INFORMATION
  Report Type: Spontaneous
  Country: US (occurrence: US)
  Receive Date: 20210215
  Receipt Date: 20210531
  Transmission Date: 20210717
  Serious: No
  Sender: FDA-Public Use
  Company Number: US-SA-2021SA049605

PATIENT
  Age: 63 Year
  Sex: Female

DRUGS (1)
  1. DUPIXENT [Suspect]
     Active Substance: DUPILUMAB
     Indication: DERMATITIS ATOPIC
     Dosage: 300 MG, QOW
     Route: 058
     Dates: start: 20190628

REACTIONS (8)
  - Inflammation [Not Recovered/Not Resolved]
  - Weight decreased [Unknown]
  - Muscle spasms [Unknown]
  - Polypectomy [Unknown]
  - Decreased immune responsiveness [Not Recovered/Not Resolved]
  - Gastric disorder [Unknown]
  - Lymphadenopathy [Not Recovered/Not Resolved]
  - Ear infection [Not Recovered/Not Resolved]

NARRATIVE: CASE EVENT DATE: 202104
